FAERS Safety Report 4696079-2 (Version None)
Quarter: 2005Q2

REPORT INFORMATION
  Report Type: 
  Country: None (occurrence: None)
  Receive Date: 20050621
  Receipt Date: 20050610
  Transmission Date: 20051028
  Serious: Yes (Other)
  Sender: FDA-Public Use
  Company Number: US-ROCHE-407573

PATIENT
  Age: 52 Year
  Sex: Female

DRUGS (11)
  1. PEGASYS [Suspect]
     Indication: HEPATITIS C
     Route: 065
     Dates: start: 20041013
  2. COPEGUS [Suspect]
     Indication: HEPATITIS C
     Route: 065
     Dates: start: 20041013
  3. COPEGUS [Suspect]
     Route: 065
  4. COPEGUS [Suspect]
     Route: 065
     Dates: end: 20041230
  5. PROCRIT [Suspect]
     Indication: ANAEMIA
     Route: 058
     Dates: start: 20040615
  6. PROCRIT [Suspect]
     Route: 058
  7. LAMIVUDINE [Suspect]
     Indication: DRUG USE FOR UNKNOWN INDICATION
     Route: 065
     Dates: start: 20040915
  8. ZERIT [Concomitant]
     Indication: IMMUNOSUPPRESSION
  9. KALETRA [Concomitant]
     Indication: IMMUNOSUPPRESSION
  10. NEURONTIN [Concomitant]
  11. VICODIN [Concomitant]

REACTIONS (5)
  - ANAEMIA [None]
  - APLASIA PURE RED CELL [None]
  - DRUG INEFFECTIVE [None]
  - DRUG SPECIFIC ANTIBODY ABSENT [None]
  - RENAL FAILURE [None]
